FAERS Safety Report 5609421-2 (Version None)
Quarter: 2008Q1

REPORT INFORMATION
  Report Type: 
  Country: None (occurrence: None)
  Receive Date: 20080131
  Receipt Date: 20080122
  Transmission Date: 20080703
  Serious: Yes (Hospitalization)
  Sender: FDA-Public Use
  Company Number: ES-ROCHE-385240

PATIENT
  Age: 54 Year
  Sex: Male
  Weight: 66.2 kg

DRUGS (16)
  1. DACLIZUMAB [Suspect]
     Route: 042
     Dates: start: 20041018, end: 20041018
  2. DACLIZUMAB [Suspect]
     Dosage: FORM: VIALS.
     Route: 042
  3. MYCOPHENOLATE MOFETIL [Suspect]
     Route: 048
     Dates: start: 20041018, end: 20041018
  4. MYCOPHENOLATE MOFETIL [Suspect]
     Route: 048
  5. MYCOPHENOLATE MOFETIL [Suspect]
     Route: 048
     Dates: start: 20041115
  6. TACROLIMUS [Suspect]
     Route: 048
     Dates: start: 20041018, end: 20041018
  7. TACROLIMUS [Suspect]
     Route: 048
  8. TACROLIMUS [Suspect]
     Route: 048
     Dates: start: 20041115
  9. STEROIDS NOS [Suspect]
     Dosage: FORM REPORTED AS VIAL.
     Route: 042
     Dates: start: 20041018, end: 20041018
  10. STEROIDS NOS [Suspect]
     Route: 048
  11. PREDNISONE TAB [Concomitant]
     Route: 048
     Dates: start: 20041019
  12. OMEPRAZOLE [Concomitant]
     Route: 048
     Dates: start: 20041019
  13. SEPTRIN [Concomitant]
     Dosage: DOSE REPORTED AS 80/400 DAILY.
     Route: 048
     Dates: start: 20041019
  14. ATENOLOL [Concomitant]
     Route: 048
     Dates: start: 20041024
  15. COTRIMOXAZOLE [Concomitant]
     Route: 048
     Dates: start: 20041019
  16. ATORVASTATIN CALCIUM [Concomitant]
     Dates: start: 20041202

REACTIONS (4)
  - CYTOMEGALOVIRUS INFECTION [None]
  - ISCHAEMIC STROKE [None]
  - URINARY FISTULA [None]
  - URINARY TRACT INFECTION [None]
